FAERS Safety Report 7717542 (Version 3)
Quarter: 2012Q4

REPORT INFORMATION
  Report Type: 
  Country: US (occurrence: US)
  Receive Date: 20101217
  Receipt Date: 20121214
  Transmission Date: 20130627
  Serious: Yes (Hospitalization, Other)
  Sender: FDA-Public Use
  Company Number: US-ELI_LILLY_AND_COMPANY-US201007005406

PATIENT
  Age: 55 Year
  Sex: Female

DRUGS (8)
  1. FORTEO [Suspect]
     Indication: OSTEOPOROSIS
     Dosage: 20 ug, daily (1/D)
     Route: 065
     Dates: start: 201007
  2. FORTEO [Suspect]
     Dosage: 20 ug, daily (1/D)
     Dates: end: 201207
  3. EVISTA [Suspect]
     Indication: OSTEOPOROSIS
     Dosage: 60 mg, qd
  4. ALLEGRA [Concomitant]
     Dosage: UNK, unknown
     Route: 065
  5. NORVASC [Concomitant]
     Dosage: UNK, unknown
     Route: 065
  6. VALIUM [Concomitant]
     Dosage: UNK, unknown
     Route: 065
  7. NASONEX [Concomitant]
     Dosage: UNK, unknown
     Route: 065
  8. PROTONIX [Concomitant]
     Dosage: UNK, unknown
     Route: 065

REACTIONS (9)
  - Fracture nonunion [Unknown]
  - Nausea [Not Recovered/Not Resolved]
  - Hypotension [Unknown]
  - Malaise [Unknown]
  - Headache [Unknown]
  - Seasonal allergy [Unknown]
  - Hypophagia [Unknown]
  - Arthralgia [Unknown]
  - Pain in extremity [Unknown]
